FAERS Safety Report 9571308 (Version 1)
Quarter: 2013Q4

REPORT INFORMATION
  Report Type: Spontaneous
  Country: GB (occurrence: GB)
  Receive Date: 20131001
  Receipt Date: 20131001
  Transmission Date: 20140711
  Serious: Yes (Hospitalization, Other)
  Sender: FDA-Public Use
  Company Number: GB-TEVA-434259ISR

PATIENT
  Age: 51 Year
  Sex: Male

DRUGS (14)
  1. DICLOFENAC [Suspect]
     Indication: GOUT
     Route: 048
     Dates: start: 20061026, end: 20061102
  2. COLCHICINE [Suspect]
     Indication: GOUT
     Dosage: SELF-REDUCED DUE TO SIDE-EFFECTS TO 6 PER DAY
     Route: 048
     Dates: start: 20061026
  3. LISINOPRIL [Concomitant]
  4. INSULATARD PORCINE [Concomitant]
     Route: 058
  5. ASPIRIN [Concomitant]
  6. OMEPRAZOLE [Concomitant]
  7. ATENOLOL [Concomitant]
  8. BEZAFIBRATE [Concomitant]
  9. SIMVASTATIN [Concomitant]
  10. AMLODIPINE [Concomitant]
  11. FERROUS SULPHATE [Concomitant]
  12. PORCINE ACTRAPID [Concomitant]
  13. BENDROFLUMETHIAZIDE [Concomitant]
  14. CO-DYDRAMOL [Concomitant]
     Dosage: PATIENT WAS TAKING ABOVE RECOMMENDED LIMIT

REACTIONS (9)
  - Diarrhoea [Recovered/Resolved]
  - Renal failure acute [Recovered/Resolved]
  - Metabolic acidosis [Recovered/Resolved]
  - Drug dispensing error [Unknown]
  - Weight decreased [Unknown]
  - Malaise [Unknown]
  - Dehydration [Unknown]
  - Pallor [Unknown]
  - Inflammatory marker increased [Unknown]
